APPROVED DRUG PRODUCT: PROPRANOLOL HYDROCHLORIDE
Active Ingredient: PROPRANOLOL HYDROCHLORIDE
Strength: 90MG
Dosage Form/Route: TABLET;ORAL
Application: A071496 | Product #001
Applicant: DAVA PHARMACEUTICALS INC
Approved: Dec 31, 1987 | RLD: No | RS: No | Type: DISCN